FAERS Safety Report 14349858 (Version 2)
Quarter: 2018Q1

REPORT INFORMATION
  Report Type: Spontaneous
  Country: US (occurrence: US)
  Receive Date: 20180104
  Receipt Date: 20180104
  Transmission Date: 20180509
  Serious: No
  Sender: FDA-Public Use
  Company Number: US-DRREDDYS-USA/USA/17/0086513

PATIENT
  Age: 65 Year
  Sex: Female
  Weight: 70.3 kg

DRUGS (2)
  1. NICOTINE. [Suspect]
     Active Substance: NICOTINE
     Indication: SMOKING CESSATION THERAPY
     Route: 061
  2. NICOTINE. [Interacting]
     Active Substance: NICOTINE
     Route: 061
     Dates: start: 20170110, end: 20170112

REACTIONS (4)
  - Rash [Not Recovered/Not Resolved]
  - Drug interaction [Unknown]
  - Treatment noncompliance [Unknown]
  - Incorrect dose administered [Unknown]
